FAERS Safety Report 13626415 (Version 1)
Quarter: 2017Q2

REPORT INFORMATION
  Report Type: Spontaneous
  Country: US (occurrence: US)
  Receive Date: 20170531
  Receipt Date: 20170531
  Transmission Date: 20170830
  Serious: Yes (Hospitalization)
  Sender: FDA-Public Use
  Company Number: US-ASTELLAS-1370843

PATIENT
  Age: 66 Year
  Sex: Female

DRUGS (8)
  1. OXYBUTYNIN [Concomitant]
     Active Substance: OXYBUTYNIN
  2. PROZAC [Concomitant]
     Active Substance: FLUOXETINE HYDROCHLORIDE
  3. OMEPRAZOLE. [Concomitant]
     Active Substance: OMEPRAZOLE
  4. LISINOPRIL. [Concomitant]
     Active Substance: LISINOPRIL
  5. DOXYCYCLINE. [Concomitant]
     Active Substance: DOXYCYCLINE
  6. FLUOXETINE [Concomitant]
     Active Substance: FLUOXETINE HYDROCHLORIDE
  7. DOXYCYCLINE HYCLATE. [Concomitant]
     Active Substance: DOXYCYCLINE HYCLATE
  8. TARCEVA [Suspect]
     Active Substance: ERLOTINIB HYDROCHLORIDE
     Indication: LUNG NEOPLASM MALIGNANT
     Route: 048
     Dates: start: 20130820

REACTIONS (12)
  - Pharyngeal oedema [Not Recovered/Not Resolved]
  - Disease progression [Unknown]
  - Diarrhoea [Unknown]
  - Onychomadesis [Not Recovered/Not Resolved]
  - Throat irritation [Not Recovered/Not Resolved]
  - Dehydration [Unknown]
  - Rash [Unknown]
  - Drug ineffective [Unknown]
  - Muscle spasms [Unknown]
  - Stomatitis [Unknown]
  - Arthralgia [Not Recovered/Not Resolved]
  - Bone pain [Not Recovered/Not Resolved]

NARRATIVE: CASE EVENT DATE: 20140314
